FAERS Safety Report 5441992-1 (Version None)
Quarter: 2007Q3

REPORT INFORMATION
  Report Type: 
  Country: None (occurrence: None)
  Receive Date: 20070904
  Receipt Date: 20070828
  Transmission Date: 20080115
  Serious: Yes (Other)
  Sender: FDA-Public Use
  Company Number: B0485388A

PATIENT
  Sex: Female

DRUGS (1)
  1. FLOLAN [Suspect]
     Route: 065

REACTIONS (1)
  - THROMBOSIS [None]
